FAERS Safety Report 9851806 (Version 1)
Quarter: 2014Q1

REPORT INFORMATION
  Report Type: Spontaneous
  Country: US (occurrence: None)
  Receive Date: 20140127
  Receipt Date: 20140127
  Transmission Date: 20141002
  Serious: Yes (Other)
  Sender: FDA-Public Use
  Company Number: 2014SA006792

PATIENT
  Age: 31 Year
  Sex: Male

DRUGS (2)
  1. GOLD BOND POWDER SPRAY CLASSIC [Suspect]
  2. BACTRIM [Concomitant]

REACTIONS (2)
  - Application site burn [None]
  - Application site vesicles [None]
